FAERS Safety Report 25496451 (Version 1)
Quarter: 2025Q2

REPORT INFORMATION
  Report Type: Spontaneous
  Country: CN (occurrence: CN)
  Receive Date: 20250630
  Receipt Date: 20250630
  Transmission Date: 20250717
  Serious: Yes (Hospitalization)
  Sender: BEIGENE
  Company Number: CN-BEIGENE-BGN-2025-010269

PATIENT

DRUGS (2)
  1. TISLELIZUMAB [Suspect]
     Active Substance: TISLELIZUMAB
     Indication: Squamous cell carcinoma of lung
  2. TISLELIZUMAB [Suspect]
     Active Substance: TISLELIZUMAB

REACTIONS (2)
  - Oral herpes [Not Recovered/Not Resolved]
  - Pyrexia [Not Recovered/Not Resolved]
